FAERS Safety Report 6413472-8 (Version None)
Quarter: 2009Q4

REPORT INFORMATION
  Report Type: 
  Country: None (occurrence: None)
  Receive Date: 20091026
  Receipt Date: 20091014
  Transmission Date: 20100525
  Serious: Yes (Other)
  Sender: FDA-Public Use
  Company Number: US-AMGEN-QUU314842

PATIENT
  Sex: Female

DRUGS (3)
  1. NEULASTA [Suspect]
     Indication: CHEMOTHERAPY
     Route: 058
     Dates: start: 20081014
  2. DOXORUBICIN HCL [Concomitant]
     Dates: start: 20081013
  3. CYCLOPHOSPHAMIDE [Concomitant]
     Dates: start: 20081013

REACTIONS (3)
  - INFLUENZA LIKE ILLNESS [None]
  - PYREXIA [None]
  - WHITE BLOOD CELL COUNT DECREASED [None]
